FAERS Safety Report 16381286 (Version 2)
Quarter: 2019Q3

REPORT INFORMATION
  Report Type: Spontaneous
  Country: US (occurrence: US)
  Receive Date: 20190603
  Receipt Date: 20190905
  Transmission Date: 20191004
  Serious: Yes (Other)
  Sender: FDA-Public Use
  Company Number: US-ASTRAZENECA-2018SF00486

PATIENT
  Age: 67 Year
  Sex: Female
  Weight: 93 kg

DRUGS (20)
  1. LEVOCETIRIZINE [Concomitant]
     Active Substance: LEVOCETIRIZINE
  2. ETODOLAC. [Concomitant]
     Active Substance: ETODOLAC
  3. TERBINAFINE. [Concomitant]
     Active Substance: TERBINAFINE
  4. AZITHROMYCIN ANHYDROUS. [Concomitant]
     Active Substance: AZITHROMYCIN ANHYDROUS
  5. LEVAQUIN [Concomitant]
     Active Substance: LEVOFLOXACIN
  6. NEXIUM [Suspect]
     Active Substance: ESOMEPRAZOLE MAGNESIUM
     Indication: GASTROOESOPHAGEAL REFLUX DISEASE
     Route: 048
     Dates: start: 2010, end: 2015
  7. PROMETHAZINE [Concomitant]
     Active Substance: PROMETHAZINE HYDROCHLORIDE
  8. PANTOPRAZOLE [Suspect]
     Active Substance: PANTOPRAZOLE
     Indication: GASTROOESOPHAGEAL REFLUX DISEASE
     Dosage: 40 MG
     Route: 065
     Dates: start: 2016, end: 2018
  9. GABAPENTIN. [Concomitant]
     Active Substance: GABAPENTIN
  10. MELOXICAM. [Concomitant]
     Active Substance: MELOXICAM
  11. CELEBREX [Concomitant]
     Active Substance: CELECOXIB
  12. AMOXICILLIN. [Concomitant]
     Active Substance: AMOXICILLIN
  13. PREDNISONE. [Concomitant]
     Active Substance: PREDNISONE
  14. FLUCONAZOLE. [Concomitant]
     Active Substance: FLUCONAZOLE
  15. IBUPROFEN. [Concomitant]
     Active Substance: IBUPROFEN
  16. NEXIUM [Suspect]
     Active Substance: ESOMEPRAZOLE MAGNESIUM
     Indication: GASTROOESOPHAGEAL REFLUX DISEASE
     Dosage: 40 MG
     Route: 048
     Dates: start: 2010, end: 2014
  17. LOVASTATIN. [Concomitant]
     Active Substance: LOVASTATIN
  18. CIMETIDINE [Concomitant]
     Active Substance: CIMETIDINE
  19. VALSARTAN. [Concomitant]
     Active Substance: VALSARTAN
  20. METRONIDAZOLE. [Concomitant]
     Active Substance: METRONIDAZOLE

REACTIONS (3)
  - Acute kidney injury [Not Recovered/Not Resolved]
  - Nephrectomy [Not Recovered/Not Resolved]
  - Chronic kidney disease [Not Recovered/Not Resolved]

NARRATIVE: CASE EVENT DATE: 2015
